FAERS Safety Report 18933069 (Version 1)
Quarter: 2021Q1

REPORT INFORMATION
  Report Type: Spontaneous
  Country: US (occurrence: US)
  Receive Date: 20210224
  Receipt Date: 20210224
  Transmission Date: 20210420
  Serious: No
  Sender: FDA-Public Use
  Company Number: None

PATIENT
  Age: 28 Year
  Sex: Female
  Weight: 56.25 kg

DRUGS (3)
  1. AIMOVIG [Suspect]
     Active Substance: ERENUMAB-AOOE
     Indication: MIGRAINE
     Dosage: ?          OTHER FREQUENCY:1X MONTH;?
     Route: 058
     Dates: start: 20190101, end: 20201101
  2. OMEPREZOLE [Concomitant]
     Active Substance: OMEPRAZOLE
  3. FAMOTODINE [Concomitant]

REACTIONS (1)
  - Alopecia [None]
